FAERS Safety Report 9806302 (Version 1)
Quarter: 2014Q1

REPORT INFORMATION
  Report Type: Spontaneous
  Country: None (occurrence: US)
  Receive Date: 20140109
  Receipt Date: 20140109
  Transmission Date: 20141002
  Serious: No
  Sender: FDA-Public Use
  Company Number: US-BAXTER-2008BH001784

PATIENT
  Sex: 0

DRUGS (1)
  1. SODIUM CHLORIDE_SODIUM CHLORIDE 0.90 %_IRRIGATION SOLUTION_BAG, PVC [Suspect]
     Indication: PRODUCT USED FOR UNKNOWN INDICATION
     Route: 065

REACTIONS (1)
  - Expired drug administered [Unknown]
